FAERS Safety Report 19908959 (Version 1)
Quarter: 2021Q4

REPORT INFORMATION
  Report Type: Report from Study
  Country: SE (occurrence: SE)
  Receive Date: 20211001
  Receipt Date: 20211001
  Transmission Date: 20220303
  Serious: Yes (Death, Hospitalization)
  Sender: FDA-Public Use
  Company Number: SE-EMA-DD-20200127-GANGAL_S-120808

PATIENT
  Age: 65 Year
  Sex: Female
  Weight: 57 kg

DRUGS (16)
  1. OPSUMIT [Suspect]
     Active Substance: MACITENTAN
     Indication: Pulmonary arterial hypertension
     Dosage: 10 MG, QD
     Route: 048
     Dates: start: 20181101, end: 20200209
  2. UPTRAVI [Suspect]
     Active Substance: SELEXIPAG
     Indication: Pulmonary arterial hypertension
     Dosage: 800 MG, QD
     Route: 048
     Dates: start: 20190909, end: 20190916
  3. UPTRAVI [Suspect]
     Active Substance: SELEXIPAG
     Dosage: 400 MCG, QD
     Route: 048
     Dates: start: 20190826, end: 20190909
  4. UPTRAVI [Suspect]
     Active Substance: SELEXIPAG
     Dosage: 400 MCG, QD
     Route: 048
     Dates: start: 20190916, end: 20190923
  5. UPTRAVI [Suspect]
     Active Substance: SELEXIPAG
     Dosage: 200 MG, QD
     Route: 048
     Dates: start: 20190924, end: 20190929
  6. SACUBITRIL\VALSARTAN [Suspect]
     Active Substance: SACUBITRIL\VALSARTAN
     Indication: Cardiac failure
     Dosage: STARTED IN 2019
     Route: 048
     Dates: end: 20200209
  7. SPIRONOLACTONE [Suspect]
     Active Substance: SPIRONOLACTONE
     Indication: Product used for unknown indication
     Route: 048
  8. ADCIRCA [Concomitant]
     Active Substance: TADALAFIL
     Indication: Pulmonary arterial hypertension
     Dosage: 40 MG, QD
     Route: 048
     Dates: start: 20181101, end: 20200209
  9. FUROSEMIDE [Concomitant]
     Active Substance: FUROSEMIDE
     Indication: Diuretic therapy
     Dosage: UNK, PRN
     Route: 048
     Dates: end: 20200209
  10. OMEPRAZOLE [Concomitant]
     Active Substance: OMEPRAZOLE
     Indication: Gastritis
     Dosage: UNK, PRN
     Route: 048
     Dates: end: 20200209
  11. CYANOCOBALAMIN [Concomitant]
     Active Substance: CYANOCOBALAMIN
     Indication: Vitamin B complex deficiency
     Dosage: UNK, PRN
     Route: 048
     Dates: end: 20200209
  12. FOLIC ACID [Concomitant]
     Active Substance: FOLIC ACID
     Indication: Hypovitaminosis
     Dosage: UNK
     Route: 048
     Dates: end: 20200209
  13. VITAMIN D [Concomitant]
     Active Substance: VITAMIN D NOS
     Indication: Vitamin D deficiency
     Dosage: UNK
     Route: 048
     Dates: end: 20200209
  14. LEVOTHYROXINE SODIUM [Concomitant]
     Active Substance: LEVOTHYROXINE SODIUM
     Indication: Hypothyroidism
     Dosage: UNK
     Route: 048
     Dates: end: 20200209
  15. BISOPROLOL [Concomitant]
     Active Substance: BISOPROLOL
     Indication: Arrhythmia
     Dosage: UNK
     Route: 048
     Dates: end: 20200209
  16. APIXABAN [Concomitant]
     Active Substance: APIXABAN
     Indication: Anticoagulant therapy
     Dosage: UNK
     Route: 048
     Dates: end: 20200209

REACTIONS (14)
  - Right ventricular failure [Fatal]
  - Left ventricular failure [Fatal]
  - Prohormone brain natriuretic peptide increased [Fatal]
  - Cardiac failure [Unknown]
  - Pleural effusion [Unknown]
  - Dyspnoea [Recovered/Resolved]
  - Arrhythmia [Unknown]
  - Atrial flutter [Unknown]
  - Renal impairment [Unknown]
  - Glomerular filtration rate decreased [Unknown]
  - Blood creatinine increased [Unknown]
  - Creatinine renal clearance decreased [Unknown]
  - Atrial fibrillation [Unknown]
  - Myositis [Unknown]

NARRATIVE: CASE EVENT DATE: 20190115
